FAERS Safety Report 13891326 (Version 1)
Quarter: 2017Q3

REPORT INFORMATION
  Report Type: Spontaneous
  Country: US (occurrence: US)
  Receive Date: 20170816
  Receipt Date: 20170816
  Transmission Date: 20171127
  Serious: Yes (Hospitalization, Other)
  Sender: FDA-Public Use
  Company Number: None

PATIENT
  Age: 58 Year
  Sex: Male
  Weight: 107.2 kg

DRUGS (1)
  1. OCRELIZUMAB. [Suspect]
     Active Substance: OCRELIZUMAB
     Indication: MULTIPLE SCLEROSIS
     Route: 041
     Dates: start: 20170626, end: 20170712

REACTIONS (7)
  - Unresponsive to stimuli [None]
  - Muscular weakness [None]
  - Acute respiratory failure [None]
  - Somnolence [None]
  - Apnoea [None]
  - Hypercapnia [None]
  - Encephalopathy [None]

NARRATIVE: CASE EVENT DATE: 20170805
